FAERS Safety Report 11047887 (Version 1)
Quarter: 2015Q2

REPORT INFORMATION
  Report Type: Spontaneous
  Country: US (occurrence: None)
  Receive Date: 20150417
  Receipt Date: 20150417
  Transmission Date: 20150821
  Serious: No
  Sender: FDA-Public Use
  Company Number: None

PATIENT
  Age: 59 Year
  Sex: Female
  Weight: 74.39 kg

DRUGS (13)
  1. MELATONIN [Concomitant]
     Active Substance: MELATONIN
  2. LEXAPRO [Concomitant]
     Active Substance: ESCITALOPRAM OXALATE
  3. MUSCLE RELAXER (DEXA SOMETHING) [Concomitant]
  4. GENERIC SUDAFED [Concomitant]
  5. ACETAMINIFIN [Concomitant]
  6. GUAIFENESIN. [Concomitant]
     Active Substance: GUAIFENESIN
  7. AZITHROMYCIN TABLETS 250 MG SANDOZ [Suspect]
     Active Substance: AZITHROMYCIN DIHYDRATE
     Indication: SINUSITIS
     Dosage: 1ST DOSE=2 PILLS, 1 PILL/DAYX4?1ST DOSE =2 PILLS, TAKEN BY MOUTH
     Route: 048
     Dates: start: 20150413, end: 20150416
  8. WARFARIN [Concomitant]
     Active Substance: WARFARIN
  9. FISH OIL [Concomitant]
     Active Substance: FISH OIL
  10. CRANBERRY EXTRACT [Concomitant]
     Active Substance: CRANBERRY JUICE
  11. MAGNESIUM [Concomitant]
     Active Substance: MAGNESIUM
  12. PLUOROURICIL [Concomitant]
  13. VITAMIN D [Concomitant]
     Active Substance: CHOLECALCIFEROL

REACTIONS (4)
  - Insomnia [None]
  - Dysgeusia [None]
  - Restlessness [None]
  - Tongue discolouration [None]

NARRATIVE: CASE EVENT DATE: 20150416
